FAERS Safety Report 4582565-2 (Version None)
Quarter: 2005Q1

REPORT INFORMATION
  Report Type: 
  Country: None (occurrence: None)
  Receive Date: 20050215
  Receipt Date: 20041215
  Transmission Date: 20050727
  Serious: Yes (Death)
  Sender: FDA-Public Use
  Company Number: 200419657US

PATIENT
  Sex: Female
  Weight: 108.1 kg

DRUGS (8)
  1. LANTUS [Suspect]
     Indication: DIABETES MELLITUS NON-INSULIN-DEPENDENT
     Dosage: DOSE UNIT: UNITS
     Route: 058
     Dates: start: 20020117, end: 20041210
  2. AMARYL [Concomitant]
     Route: 048
     Dates: start: 20000701
  3. LANOXIN [Concomitant]
     Route: 048
     Dates: start: 19950101
  4. COUMADIN [Concomitant]
     Route: 048
     Dates: start: 20000711
  5. VERAPAMIL [Concomitant]
     Route: 048
     Dates: start: 19960101
  6. LASIX [Concomitant]
     Route: 048
     Dates: start: 19950101
  7. K-DUR 10 [Concomitant]
     Route: 048
     Dates: start: 19950101
  8. TOPROL-XL [Concomitant]
     Route: 048
     Dates: start: 20030205

REACTIONS (1)
  - ATHEROSCLEROSIS [None]
